FAERS Safety Report 10167497 (Version 1)
Quarter: 2014Q2

REPORT INFORMATION
  Report Type: Spontaneous
  Country: US (occurrence: US)
  Receive Date: 20140512
  Receipt Date: 20140512
  Transmission Date: 20141212
  Serious: No
  Sender: FDA-Public Use
  Company Number: US-GILEAD-2014-0102049

PATIENT
  Sex: Female

DRUGS (1)
  1. LETAIRIS [Suspect]
     Indication: PRODUCT USED FOR UNKNOWN INDICATION
     Dosage: 10 MG, QD
     Route: 065
     Dates: start: 20120806

REACTIONS (9)
  - Syncope [Unknown]
  - Hypoaesthesia [Unknown]
  - Contusion [Unknown]
  - Weight bearing difficulty [Unknown]
  - Peripheral swelling [Unknown]
  - Headache [Unknown]
  - Swelling face [Unknown]
  - Hypersensitivity [Unknown]
  - Nasopharyngitis [Unknown]
